FAERS Safety Report 9600539 (Version 1)
Quarter: 2013Q4

REPORT INFORMATION
  Report Type: Spontaneous
  Country: US (occurrence: US)
  Receive Date: 20131004
  Receipt Date: 20131004
  Transmission Date: 20140711
  Serious: No
  Sender: FDA-Public Use
  Company Number: US-AMGEN-USASP2013035579

PATIENT
  Age: 64 Year
  Sex: Female
  Weight: 104.31 kg

DRUGS (13)
  1. ENBREL [Suspect]
     Indication: PRODUCT USED FOR UNKNOWN INDICATION
     Dosage: 50 MG, QWK
     Route: 058
  2. HUMULIN R [Concomitant]
     Dosage: 100 UNIT, UNK
  3. CENTRUM SILVER                     /02363801/ [Concomitant]
     Dosage: UNK
  4. CALTRATE                           /00944201/ [Concomitant]
     Dosage: 600 UNK, UNK
  5. MELOXICAM [Concomitant]
     Dosage: 7.5 MG, UNK
  6. LOSARTAN/HCT [Concomitant]
     Dosage: 100-12.5
  7. CLOBEX                             /00012002/ [Concomitant]
     Dosage: 0.05 %, UNK
  8. ASA [Concomitant]
     Dosage: 81 MG, UNK
  9. GLUCO + CHONDROITIN [Concomitant]
     Dosage: 1500 UNK, UNK
  10. GINSENG                            /01384001/ [Concomitant]
     Dosage: 518 MG, UNK
  11. FISH OIL [Concomitant]
     Dosage: UNK
  12. CRANBERRY                          /01512301/ [Concomitant]
     Dosage: UNK
  13. GINKGO BILOBA [Concomitant]
     Dosage: 60 MG, UNK

REACTIONS (1)
  - Back pain [Unknown]
